FAERS Safety Report 9290747 (Version 1)
Quarter: 2013Q2

REPORT INFORMATION
  Report Type: Spontaneous
  Country: FR (occurrence: FR)
  Receive Date: 20130515
  Receipt Date: 20130515
  Transmission Date: 20140414
  Serious: Yes (Death)
  Sender: FDA-Public Use
  Company Number: FR-B.I. PHARMACEUTICALS,INC./RIDGEFIELD-2013-FF-01362FF

PATIENT
  Age: 70 Year
  Sex: Female

DRUGS (9)
  1. PRADAXA [Suspect]
     Indication: ATRIAL FIBRILLATION
     Dosage: 300 MG
     Route: 048
     Dates: end: 20130225
  2. LOVENOX [Suspect]
     Dosage: 6000 U
     Route: 058
     Dates: start: 20130225, end: 20130225
  3. LOVENOX [Suspect]
     Dosage: 6000 U MORNING AND 4000 U EVENING
     Route: 058
     Dates: start: 20130226, end: 20130226
  4. LOVENOX [Suspect]
     Dosage: 4000 U
     Route: 058
     Dates: start: 20130227, end: 20130227
  5. AUGMENTIN [Concomitant]
     Dosage: 1 G/200 MG X 3 DAILY
     Route: 042
     Dates: start: 20130225
  6. ATENOLOL [Concomitant]
     Dosage: 50 MG
     Route: 048
  7. RENITEC [Concomitant]
     Dosage: 20 MG
     Route: 048
  8. LASILIX [Concomitant]
     Dosage: 20 MG
     Route: 048
  9. SIMVASTATINE [Concomitant]
     Dosage: 20 MG
     Route: 048

REACTIONS (1)
  - Post procedural haemorrhage [Fatal]
